FAERS Safety Report 9258066 (Version 3)
Quarter: 2013Q3

REPORT INFORMATION
  Report Type: Spontaneous
  Country: US (occurrence: US)
  Receive Date: 20130426
  Receipt Date: 20130701
  Transmission Date: 20140515
  Serious: Yes (Other)
  Sender: FDA-Public Use
  Company Number: US-JNJFOC-20130411406

PATIENT
  Age: 79 Year
  Sex: Male
  Weight: 83.92 kg

DRUGS (8)
  1. REMICADE [Suspect]
     Indication: RHEUMATOID ARTHRITIS
     Dosage: DOSE: 600 (UNITS UNSPECIFIED); RECEIVED NUMEROUS INFLIXIMAB INFUSIONS FOR MORE THAN 12 YEARS
     Route: 042
     Dates: start: 19990212, end: 20130225
  2. METHOTREXATE [Concomitant]
     Route: 065
  3. METHOTREXATE [Concomitant]
     Dosage: INITIATED PRIOR TO 2000
     Route: 065
     Dates: end: 20130422
  4. FOLIC ACID [Concomitant]
     Route: 065
  5. INSULIN [Concomitant]
     Route: 065
  6. DOXAZOSIN [Concomitant]
     Route: 065
  7. PROPRANOLOL [Concomitant]
     Route: 065
  8. FINASTERIDE [Concomitant]
     Route: 065

REACTIONS (1)
  - Non-Hodgkin^s lymphoma [Not Recovered/Not Resolved]
